FAERS Safety Report 8363257-0 (Version None)
Quarter: 2012Q2

REPORT INFORMATION
  Report Type: 
  Country: None (occurrence: None)
  Receive Date: 20120516
  Receipt Date: 20120112
  Transmission Date: 20120825
  Serious: Yes (Hospitalization)
  Sender: FDA-Public Use
  Company Number: US-GLAXOSMITHKLINE-A0961155A

PATIENT
  Age: 77 Year
  Sex: Male

DRUGS (7)
  1. BACTROBAN [Suspect]
     Indication: PREOPERATIVE CARE
     Route: 045
     Dates: start: 20120108, end: 20120111
  2. PROPRANOLOL [Concomitant]
  3. LIDODERM [Concomitant]
  4. UROXATRAL [Concomitant]
  5. PROSTATIN [Concomitant]
  6. PLAVIX [Concomitant]
  7. VOLTAREN [Concomitant]

REACTIONS (3)
  - DRY MOUTH [None]
  - HEADACHE [None]
  - NAUSEA [None]
